FAERS Safety Report 7421828-X (Version None)
Quarter: 2011Q2

REPORT INFORMATION
  Report Type: 
  Country: None (occurrence: None)
  Receive Date: 20110418
  Receipt Date: 20110413
  Transmission Date: 20111010
  Serious: Yes (Hospitalization)
  Sender: FDA-Public Use
  Company Number: CA-GILEAD-2011-0037799

PATIENT
  Sex: Male
  Weight: 68.1 kg

DRUGS (5)
  1. TRUVADA [Suspect]
     Indication: HIV INFECTION
     Dates: start: 20110121, end: 20110226
  2. LYRICA [Concomitant]
     Dates: start: 20080101
  3. KALETRA [Concomitant]
     Indication: HIV INFECTION
     Dates: start: 20080101
  4. SYNTHROID [Concomitant]
     Indication: HYPOTHYROIDISM
     Dates: start: 20080101
  5. PAROXETINE [Concomitant]
     Dates: start: 20080101

REACTIONS (2)
  - CONFUSIONAL STATE [None]
  - GRAND MAL CONVULSION [None]
